FAERS Safety Report 19808825 (Version 1)
Quarter: 2021Q3

REPORT INFORMATION
  Report Type: Spontaneous
  Country: US (occurrence: US)
  Receive Date: 20210909
  Receipt Date: 20210909
  Transmission Date: 20211014
  Serious: Yes (Other)
  Sender: FDA-Public Use
  Company Number: US-DRREDDYS-LIT/USA/21/0139887

PATIENT
  Age: 67 Year
  Sex: Female

DRUGS (20)
  1. TRAMADOL. [Suspect]
     Active Substance: TRAMADOL
     Indication: PLEURITIC PAIN
  2. KETAMINE [Suspect]
     Active Substance: KETAMINE
     Indication: PLEURITIC PAIN
  3. OXYCODONE/PARACETAMOL [Suspect]
     Active Substance: ACETAMINOPHEN\OXYCODONE HYDROCHLORIDE
     Indication: PLEURITIC PAIN
  4. NAPROXEN. [Suspect]
     Active Substance: NAPROXEN
     Indication: PLEURITIC PAIN
  5. MORPHINE [Suspect]
     Active Substance: MORPHINE
     Indication: PLEURITIC PAIN
  6. CELECOXIB ORAL SOLUTION [Suspect]
     Active Substance: CELECOXIB
     Indication: PLEURITIC PAIN
  7. OXYCODONE [Suspect]
     Active Substance: OXYCODONE
     Indication: PLEURITIC PAIN
  8. METHADONE [Suspect]
     Active Substance: METHADONE HYDROCHLORIDE
     Indication: PLEURITIC PAIN
  9. GABAPENTIN. [Suspect]
     Active Substance: GABAPENTIN
     Indication: PLEURITIC PAIN
  10. TIZANIDINE HYDROCHLORIDE. [Suspect]
     Active Substance: TIZANIDINE HYDROCHLORIDE
     Indication: PLEURITIC PAIN
  11. IBUPROFEN. [Suspect]
     Active Substance: IBUPROFEN
     Indication: PLEURITIC PAIN
  12. LIDOCAINE. [Suspect]
     Active Substance: LIDOCAINE
     Indication: PLEURITIC PAIN
  13. NORTRIPTYLINE [Suspect]
     Active Substance: NORTRIPTYLINE
     Indication: PLEURITIC PAIN
  14. DEXAMETHASONE SODIUM PHOSPHATE INJECTION, 4 MG/ML [Suspect]
     Active Substance: DEXAMETHASONE SODIUM PHOSPHATE
     Indication: PLEURITIC PAIN
  15. KETOROLAC [Suspect]
     Active Substance: KETOROLAC TROMETHAMINE
     Indication: PLEURITIC PAIN
  16. ETODOLAC. [Suspect]
     Active Substance: ETODOLAC
     Indication: PLEURITIC PAIN
  17. THIOCTIC ACID [Suspect]
     Active Substance: .ALPHA.-LIPOIC ACID
     Indication: PLEURITIC PAIN
  18. TRAZODONE [Suspect]
     Active Substance: TRAZODONE HYDROCHLORIDE
     Indication: PLEURITIC PAIN
  19. PREGABALIN. [Suspect]
     Active Substance: PREGABALIN
     Indication: PLEURITIC PAIN
  20. PARACETAMOL [Suspect]
     Active Substance: ACETAMINOPHEN
     Indication: PLEURITIC PAIN

REACTIONS (1)
  - Drug ineffective [Unknown]
